FAERS Safety Report 13691808 (Version 1)
Quarter: 2017Q2

REPORT INFORMATION
  Report Type: Spontaneous
  Country: US (occurrence: US)
  Receive Date: 20170626
  Receipt Date: 20170626
  Transmission Date: 20170830
  Serious: Yes (Hospitalization)
  Sender: FDA-Public Use
  Company Number: US-VIFOR (INTERNATIONAL) INC.-VIT-2016-02315

PATIENT
  Age: 75 Year
  Sex: Male
  Weight: 75.75 kg

DRUGS (23)
  1. FAMOTIDINE. [Concomitant]
     Active Substance: FAMOTIDINE
     Route: 048
     Dates: start: 20170615
  2. SYNTHROID [Concomitant]
     Active Substance: LEVOTHYROXINE SODIUM
     Route: 048
     Dates: start: 20160912
  3. BUMEX [Concomitant]
     Active Substance: BUMETANIDE
  4. ASPIR-81 [Concomitant]
     Active Substance: ASPIRIN
     Route: 048
  5. AUGMENTIN [Concomitant]
     Active Substance: AMOXICILLIN\CLAVULANATE POTASSIUM
     Route: 048
     Dates: start: 20170615
  6. BACTRIM [Concomitant]
     Active Substance: SULFAMETHOXAZOLE\TRIMETHOPRIM
     Indication: LOWER RESPIRATORY TRACT INFECTION
  7. PLAVIX [Concomitant]
     Active Substance: CLOPIDOGREL BISULFATE
     Route: 048
  8. METOPROLOL TARTRATE. [Concomitant]
     Active Substance: METOPROLOL TARTRATE
     Route: 048
  9. LASIX [Concomitant]
     Active Substance: FUROSEMIDE
     Dosage: 1 TABLET ALTERNATIVE WITH 2 TABLETS EVERY OTHER DAY
     Route: 048
  10. HYDRALAZINE [Concomitant]
     Active Substance: HYDRALAZINE HYDROCHLORIDE
     Route: 048
     Dates: start: 20170615
  11. BUMETANIDE. [Concomitant]
     Active Substance: BUMETANIDE
     Route: 048
  12. COLECALCIFEROL [Concomitant]
     Active Substance: CHOLECALCIFEROL
     Route: 048
     Dates: start: 20160912
  13. TOCOPHEROL [Concomitant]
     Active Substance: TOCOPHEROL
     Route: 048
     Dates: start: 20160912
  14. SODIUM BICARBONATE. [Concomitant]
     Active Substance: SODIUM BICARBONATE
     Indication: ACIDOSIS
     Route: 048
     Dates: start: 20160912
  15. LEVEMIR [Concomitant]
     Active Substance: INSULIN DETEMIR
     Route: 058
     Dates: start: 20170119
  16. NIFEDIPINE. [Concomitant]
     Active Substance: NIFEDIPINE
     Indication: BLOOD PRESSURE INCREASED
  17. ZETIA [Concomitant]
     Active Substance: EZETIMIBE
     Route: 048
     Dates: start: 20160912
  18. NOVOLOG [Concomitant]
     Active Substance: INSULIN ASPART
     Route: 058
  19. INSULIN [Concomitant]
     Active Substance: INSULIN NOS
  20. VELTASSA [Suspect]
     Active Substance: PATIROMER
     Indication: HYPERKALAEMIA
     Route: 065
     Dates: start: 20160331, end: 20160417
  21. ASCORBIC ACID. [Concomitant]
     Active Substance: ASCORBIC ACID
     Route: 048
     Dates: start: 20160912
  22. AMLODIPINE [Concomitant]
     Active Substance: AMLODIPINE BESYLATE
     Indication: BLOOD PRESSURE INCREASED
     Dosage: 1/2 TABLET EVERY DAY
     Route: 048
  23. IRON [Concomitant]
     Active Substance: IRON
     Route: 048
     Dates: start: 20170119

REACTIONS (5)
  - Heart valve replacement [Unknown]
  - Drug intolerance [Unknown]
  - Constipation [Unknown]
  - Fatigue [Unknown]
  - Peripheral swelling [Unknown]

NARRATIVE: CASE EVENT DATE: 2016
